FAERS Safety Report 8304289-8 (Version None)
Quarter: 2012Q2

REPORT INFORMATION
  Report Type: 
  Country: None (occurrence: None)
  Receive Date: 20120423
  Receipt Date: 20120423
  Transmission Date: 20120825
  Serious: Yes (Other)
  Sender: FDA-Public Use
  Company Number: None

PATIENT
  Age: 12 Year
  Sex: Male
  Weight: 38.101 kg

DRUGS (5)
  1. VYVANSE [Concomitant]
     Route: 048
  2. VYVANSE [Concomitant]
     Route: 048
  3. VITAMIN B6 [Concomitant]
     Route: 048
  4. INTUNIV [Suspect]
     Indication: ATTENTION DEFICIT/HYPERACTIVITY DISORDER
     Dosage: 2MG
     Route: 048
     Dates: start: 20120225, end: 20120411
  5. ISONIAZID [Concomitant]
     Route: 048

REACTIONS (1)
  - HEADACHE [None]
